FAERS Safety Report 12583285 (Version 3)
Quarter: 2016Q3

REPORT INFORMATION
  Report Type: Spontaneous
  Country: US (occurrence: US)
  Receive Date: 20160722
  Receipt Date: 20160805
  Transmission Date: 20161109
  Serious: Yes (Other)
  Sender: FDA-Public Use
  Company Number: US-GLAXOSMITHKLINE-US2016102816

PATIENT
  Age: 56 Year
  Sex: Female

DRUGS (1)
  1. TRANSDERM SCOP [Suspect]
     Active Substance: SCOPOLAMINE
     Indication: PROPHYLAXIS OF NAUSEA AND VOMITING
     Dosage: UNK
     Dates: start: 20160711, end: 20160712

REACTIONS (15)
  - Altered state of consciousness [Unknown]
  - Palpitations [Recovered/Resolved]
  - Hypoaesthesia [Not Recovered/Not Resolved]
  - Hallucination [Unknown]
  - Visual impairment [Not Recovered/Not Resolved]
  - Vertigo [Not Recovered/Not Resolved]
  - Feeling abnormal [Not Recovered/Not Resolved]
  - Heart rate increased [Unknown]
  - Mydriasis [Not Recovered/Not Resolved]
  - Abnormal dreams [Unknown]
  - Mental status changes [Not Recovered/Not Resolved]
  - Vision blurred [Unknown]
  - Adverse drug reaction [Unknown]
  - Agitation [Unknown]
  - Wrong technique in product usage process [Unknown]

NARRATIVE: CASE EVENT DATE: 201607
